FAERS Safety Report 4906702-2 (Version None)
Quarter: 2006Q1

REPORT INFORMATION
  Report Type: 
  Country: None (occurrence: None)
  Receive Date: 20060207
  Receipt Date: 20060123
  Transmission Date: 20060701
  Serious: Yes (Hospitalization)
  Sender: FDA-Public Use
  Company Number: AU200601004094

PATIENT
  Age: 2 Year
  Sex: Male

DRUGS (3)
  1. HUMATROPE [Suspect]
     Indication: HYPOPITUITARISM
     Dosage: 0.37 MG, OTHER, SUBCUTANEOUS
     Route: 058
     Dates: start: 20030515
  2. HYDROCORTISONE [Concomitant]
  3. LEVOTHYROXINE SODIUM [Concomitant]

REACTIONS (4)
  - FEBRILE CONVULSION [None]
  - GASTROENTERITIS [None]
  - HYDROCELE [None]
  - INFLUENZA [None]
